FAERS Safety Report 14553509 (Version 1)
Quarter: 2018Q1

REPORT INFORMATION
  Report Type: Report from Study
  Country: DE (occurrence: DE)
  Receive Date: 20180220
  Receipt Date: 20180220
  Transmission Date: 20180509
  Serious: Yes (Hospitalization, Other)
  Sender: FDA-Public Use
  Company Number: DE-PFIZER INC-2018066580

PATIENT
  Sex: Female

DRUGS (13)
  1. METHOTREXATE. [Concomitant]
     Active Substance: METHOTREXATE
  2. CHARCOAL [Concomitant]
     Active Substance: ACTIVATED CHARCOAL
  3. ROACTEMRA [Concomitant]
     Active Substance: TOCILIZUMAB
     Dosage: 162 MG, UNK
     Dates: start: 201801
  4. TILIDINE [Concomitant]
     Active Substance: TILIDINE
  5. HUMIRA [Suspect]
     Active Substance: ADALIMUMAB
     Dosage: UNK
  6. RISPERDAL [Concomitant]
     Active Substance: RISPERIDONE
  7. TAVOR (LORAZEPAM) [Concomitant]
     Active Substance: LORAZEPAM
  8. XELJANZ [Suspect]
     Active Substance: TOFACITINIB CITRATE
     Dosage: 5 MG, UNK
     Dates: start: 2017, end: 2017
  9. RAMILICH [Concomitant]
     Active Substance: RAMIPRIL
  10. ERGENYL [Concomitant]
     Active Substance: VALPROIC ACID
  11. PANTOPRAZOLE [Concomitant]
     Active Substance: PANTOPRAZOLE
  12. DOMINAL /00002701/ [Concomitant]
     Active Substance: ASPIRIN
  13. HUMIRA [Suspect]
     Active Substance: ADALIMUMAB
     Indication: RHEUMATOID ARTHRITIS
     Dosage: 40 MG, EVERY 2 WEEKS
     Route: 058
     Dates: start: 20121101, end: 201709

REACTIONS (11)
  - Type 2 diabetes mellitus [Recovering/Resolving]
  - Blood count abnormal [Not Recovered/Not Resolved]
  - Psychotic disorder [Recovered/Resolved]
  - Pain [Recovering/Resolving]
  - Oedema peripheral [Not Recovered/Not Resolved]
  - Visual impairment [Not Recovered/Not Resolved]
  - Hepatic steatosis [Unknown]
  - Oedema peripheral [Recovering/Resolving]
  - Psychotic disorder [Unknown]
  - Arthritis [Recovering/Resolving]
  - Cardiac failure [Recovering/Resolving]

NARRATIVE: CASE EVENT DATE: 2014
